FAERS Safety Report 9127013 (Version 1)
Quarter: 2013Q1

REPORT INFORMATION
  Report Type: Spontaneous
  Country: DE (occurrence: DE)
  Receive Date: 20130122
  Receipt Date: 20130122
  Transmission Date: 20140127
  Serious: Yes (Hospitalization)
  Sender: FDA-Public Use
  Company Number: DE-GLAXOSMITHKLINE-D0078478A

PATIENT
  Age: 67 Year
  Sex: Male
  Weight: 85 kg

DRUGS (3)
  1. SALBUTAMOL [Suspect]
     Indication: RESPIRATORY DEPRESSION
     Route: 055
     Dates: start: 2009, end: 2012
  2. HYDROCHLOROTHIAZIDE + OLMESARTAN MEDOXOMIL [Concomitant]
     Route: 065
  3. AMLODIPIN [Concomitant]
     Route: 065

REACTIONS (2)
  - Hypertensive crisis [Recovered/Resolved]
  - Tachycardia [Recovered/Resolved]
